FAERS Safety Report 6162442-6 (Version None)
Quarter: 2009Q2

REPORT INFORMATION
  Report Type: 
  Country: None (occurrence: None)
  Receive Date: 20090421
  Receipt Date: 20090409
  Transmission Date: 20091009
  Serious: Yes (Life-Threatening, Hospitalization)
  Sender: FDA-Public Use
  Company Number: BE-PFIZER INC-2009197292

PATIENT

DRUGS (3)
  1. EPIRUBICIN HCL [Suspect]
     Indication: BREAST CANCER
     Dosage: 180 MG
     Route: 042
     Dates: start: 20081209
  2. FLUOROURACIL [Suspect]
     Indication: BREAST CANCER
     Dosage: 900 MG
     Route: 042
     Dates: start: 20081209
  3. CYCLOPHOSPHAMIDE [Suspect]
     Indication: BREAST CANCER
     Dosage: 900 MG, UNK
     Route: 042
     Dates: start: 20081209

REACTIONS (7)
  - ANAEMIA [None]
  - ANAL HAEMORRHAGE [None]
  - EPISTAXIS [None]
  - GENERAL PHYSICAL HEALTH DETERIORATION [None]
  - PANCYTOPENIA [None]
  - PYREXIA [None]
  - STREPTOCOCCAL INFECTION [None]
